FAERS Safety Report 17294154 (Version 1)
Quarter: 2020Q1

REPORT INFORMATION
  Report Type: Spontaneous
  Country: US (occurrence: US)
  Receive Date: 20200121
  Receipt Date: 20200121
  Transmission Date: 20200409
  Serious: No
  Sender: FDA-Public Use
  Company Number: US-SA-2020SA009706

PATIENT
  Age: 26 Year
  Sex: Female

DRUGS (7)
  1. IBUPROFEN. [Concomitant]
     Active Substance: IBUPROFEN
  2. CLARITIN [Concomitant]
     Active Substance: LORATADINE
  3. TRIAMCINOLON [TRIAMCINOLONE] [Concomitant]
  4. VALTREX [Concomitant]
     Active Substance: VALACYCLOVIR HYDROCHLORIDE
  5. DUPIXENT [Suspect]
     Active Substance: DUPILUMAB
     Indication: DERMATITIS ALLERGIC
     Dosage: 300/2ML, QOW
     Route: 058
     Dates: start: 20190215
  6. VITAMIN C [Concomitant]
     Active Substance: ASCORBIC ACID
  7. EMERGEN C [Concomitant]
     Active Substance: MINERALS\VITAMINS

REACTIONS (2)
  - Dermatitis atopic [Not Recovered/Not Resolved]
  - Inappropriate schedule of product administration [Unknown]
